FAERS Safety Report 12113186 (Version 3)
Quarter: 2016Q2

REPORT INFORMATION
  Report Type: Spontaneous
  Country: US (occurrence: US)
  Receive Date: 20160225
  Receipt Date: 20160418
  Transmission Date: 20160815
  Serious: Yes (Other)
  Sender: FDA-Public Use
  Company Number: US-009507513-1602USA009170

PATIENT
  Age: 81 Year
  Sex: Female

DRUGS (1)
  1. TEMODAR [Suspect]
     Active Substance: TEMOZOLOMIDE
     Indication: MELANOMA RECURRENT
     Dosage: UNK

REACTIONS (2)
  - Off label use [Unknown]
  - Metastases to gastrointestinal tract [Unknown]
